FAERS Safety Report 8615495-7 (Version None)
Quarter: 2012Q3

REPORT INFORMATION
  Report Type: 
  Country: None (occurrence: None)
  Receive Date: 20120823
  Receipt Date: 20120807
  Transmission Date: 20120928
  Serious: Yes (Death, Hospitalization, Other)
  Sender: FDA-Public Use
  Company Number: FR-009507513-1208FRA004386

PATIENT

DRUGS (11)
  1. [COMPOSITION UNSPECIFIED] [Concomitant]
  2. PREZISTA [Suspect]
     Dosage: 400 MG, BID
     Route: 048
     Dates: end: 20110601
  3. ISENTRESS [Suspect]
     Indication: HIV INFECTION
     Dosage: 400 MG, BID
     Route: 048
     Dates: start: 20110527, end: 20110601
  4. VIDEX [Suspect]
     Dosage: UNK
     Route: 048
     Dates: end: 20110527
  5. ASPIRIN [Concomitant]
  6. CRESTOR [Concomitant]
  7. VIREAD [Suspect]
     Indication: HIV INFECTION
     Dosage: UNK
     Route: 048
     Dates: end: 20110527
  8. INTELENCE [Suspect]
     Dosage: 200 MG, BID
     Route: 048
  9. NORVIR [Suspect]
     Dosage: UNK
     Route: 048
     Dates: end: 20110601
  10. CLOMIPRAMINE HYDROCHLORIDE [Concomitant]
  11. OMEPRAZOLE [Concomitant]

REACTIONS (2)
  - RENAL FAILURE ACUTE [None]
  - FANCONI SYNDROME [None]
